FAERS Safety Report 8866893 (Version 1)
Quarter: 2012Q4

REPORT INFORMATION
  Report Type: 
  Country: US (occurrence: US)
  Receive Date: 20121025
  Receipt Date: 20121025
  Transmission Date: 20130627
  Serious: No
  Sender: FDA-Public Use
  Company Number: US-AMGEN-USASP2012013708

PATIENT
  Age: 74 Year
  Sex: Female

DRUGS (7)
  1. ENBREL [Suspect]
     Indication: PRODUCT USED FOR UNKNOWN INDICATION
     Dosage: 50 mg, qwk
     Route: 058
  2. ULTRAM [Concomitant]
     Dosage: 50 mg, UNK
  3. METHOTREXATE [Concomitant]
     Dosage: 2.5 mg, UNK
  4. PRILOSEC                           /00661201/ [Concomitant]
     Dosage: 10 mg, UNK
  5. VITAMIN D /00107901/ [Concomitant]
     Dosage: UNK
  6. FISH OIL [Concomitant]
     Dosage: UNK
  7. CALCIUM [Concomitant]
     Dosage: UNK

REACTIONS (4)
  - Dysphonia [Recovered/Resolved]
  - Nasal congestion [Recovered/Resolved]
  - Increased upper airway secretion [Recovered/Resolved]
  - Malaise [Recovered/Resolved]
